FAERS Safety Report 10233638 (Version 1)
Quarter: 2014Q2

REPORT INFORMATION
  Report Type: Report from Study
  Country: ES (occurrence: ES)
  Receive Date: 20140612
  Receipt Date: 20140612
  Transmission Date: 20141212
  Serious: Yes (Other)
  Sender: FDA-Public Use
  Company Number: ES-SA-2014SA070718

PATIENT
  Age: 80 Year
  Sex: Male

DRUGS (3)
  1. CLEXANE [Suspect]
     Indication: ANGINA UNSTABLE
     Dosage: 1-0-0
     Route: 065
     Dates: start: 2014, end: 20140415
  2. CLOPIDOGREL [Suspect]
     Indication: ANGINA UNSTABLE
     Dosage: 0-1-0
     Route: 065
     Dates: start: 2014
  3. ADIRO [Suspect]
     Indication: ANGINA UNSTABLE
     Route: 065
     Dates: start: 2014

REACTIONS (2)
  - Productive cough [Recovering/Resolving]
  - Productive cough [Recovering/Resolving]
